FAERS Safety Report 5523922-7 (Version None)
Quarter: 2007Q4

REPORT INFORMATION
  Report Type: 
  Country: None (occurrence: None)
  Receive Date: 20071121
  Receipt Date: 20071120
  Transmission Date: 20080405
  Serious: Yes (Hospitalization)
  Sender: FDA-Public Use
  Company Number: US-SHR-US-2007-016301

PATIENT
  Age: 21 Year
  Sex: Female

DRUGS (3)
  1. BETASERON [Suspect]
     Indication: RELAPSING-REMITTING MULTIPLE SCLEROSIS
     Dosage: 8 MIU, EVERY 2D
     Route: 058
     Dates: start: 20060508
  2. SOLU-MEDROL [Concomitant]
     Dosage: 1 DOSE, 1X/MONTH
     Route: 042
  3. ANALGESICS [Concomitant]
     Indication: PREMEDICATION

REACTIONS (5)
  - ABASIA [None]
  - CONTUSION [None]
  - DEPRESSION [None]
  - PAIN [None]
  - ROAD TRAFFIC ACCIDENT [None]
